FAERS Safety Report 7446068-X (Version None)
Quarter: 2011Q2

REPORT INFORMATION
  Report Type: 
  Country: None (occurrence: None)
  Receive Date: 20110429
  Receipt Date: 20110419
  Transmission Date: 20111010
  Serious: Yes (Other)
  Sender: FDA-Public Use
  Company Number: US-JNJFOC-20101106273

PATIENT
  Sex: Male
  Weight: 99.79 kg

DRUGS (3)
  1. STELARA [Suspect]
     Route: 058
     Dates: end: 20100901
  2. STELARA [Suspect]
     Indication: PSORIASIS
     Route: 058
     Dates: end: 20100901
  3. STELARA [Suspect]
     Route: 058
     Dates: end: 20100901

REACTIONS (7)
  - DIZZINESS [None]
  - HEPATITIS C [None]
  - BLOOD PRESSURE INCREASED [None]
  - BALANCE DISORDER [None]
  - HYPOAESTHESIA [None]
  - JOINT STIFFNESS [None]
  - VISUAL IMPAIRMENT [None]
